FAERS Safety Report 7245324-8 (Version None)
Quarter: 2011Q1

REPORT INFORMATION
  Report Type: 
  Country: None (occurrence: None)
  Receive Date: 20110126
  Receipt Date: 20110124
  Transmission Date: 20110831
  Serious: Yes (Life-Threatening)
  Sender: FDA-Public Use
  Company Number: US-ROXANE LABORATORIES, INC.-2011-RO-00092RO

PATIENT
  Age: 16 Year
  Sex: Female

DRUGS (2)
  1. DEXAMETHASONE [Suspect]
     Dosage: 2 MG
     Route: 048
     Dates: start: 20110114, end: 20110114
  2. PREVACID [Concomitant]
     Indication: GASTROOESOPHAGEAL REFLUX DISEASE

REACTIONS (1)
  - ANAPHYLACTIC REACTION [None]
